FAERS Safety Report 4713129-5 (Version None)
Quarter: 2005Q3

REPORT INFORMATION
  Report Type: 
  Country: None (occurrence: None)
  Receive Date: 20050712
  Receipt Date: 20050712
  Transmission Date: 20060218
  Serious: Yes (Hospitalization)
  Sender: FDA-Public Use
  Company Number: None

PATIENT
  Age: 55 Year
  Sex: Male
  Weight: 99.3 kg

DRUGS (19)
  1. NAPROXEN [Suspect]
     Indication: DIABETES MELLITUS
     Dosage: 1000 MG  BI, ORAL
     Route: 048
     Dates: end: 20050322
  2. NAPROXEN [Suspect]
     Indication: HYPERTENSION
     Dosage: 1000 MG  BI, ORAL
     Route: 048
     Dates: end: 20050322
  3. NAPROXEN [Suspect]
     Indication: PAIN
     Dosage: 1000 MG  BI, ORAL
     Route: 048
     Dates: end: 20050322
  4. LISINOPRIL [Suspect]
     Dosage: 500MG BI ORAL
     Route: 048
  5. ALBUTEROL SULFATE [Concomitant]
  6. AMITRIPTYLINE HCL [Concomitant]
  7. BUPROPION HCL [Concomitant]
  8. CLONAZEPAM [Concomitant]
  9. BUSPIRONE HCL [Concomitant]
  10. GABAPENTIN [Concomitant]
  11. QUETIAPINE FUMARATE [Concomitant]
  12. AZITHROMYCIN [Concomitant]
  13. CEFUROXIME AXETIL [Concomitant]
  14. METFORMIN SA [Concomitant]
  15. PRAZOSIN HCL [Concomitant]
  16. ALBUTEROL [Concomitant]
  17. FLUTICASONE PROP [Concomitant]
  18. TIMOLOL MALEATE [Concomitant]
  19. TRAVOPROST [Concomitant]

REACTIONS (1)
  - RENAL FAILURE ACUTE [None]
